FAERS Safety Report 6909950-5 (Version None)
Quarter: 2010Q3

REPORT INFORMATION
  Report Type: 
  Country: None (occurrence: None)
  Receive Date: 20100806
  Receipt Date: 20100802
  Transmission Date: 20110219
  Serious: No
  Sender: FDA-Public Use
  Company Number: US-BIOGENIDEC-2010BI026551

PATIENT
  Age: 44 Year
  Sex: Female

DRUGS (2)
  1. TYSABRI [Suspect]
     Indication: MULTIPLE SCLEROSIS
     Route: 042
     Dates: start: 20090514, end: 20090514
  2. TYSABRI [Suspect]
     Route: 042
     Dates: start: 20100112

REACTIONS (4)
  - EXTRASYSTOLES [None]
  - INFLAMMATION [None]
  - PAIN IN EXTREMITY [None]
  - URINARY INCONTINENCE [None]
